FAERS Safety Report 7729812-3 (Version None)
Quarter: 2011Q3

REPORT INFORMATION
  Report Type: 
  Country: None (occurrence: None)
  Receive Date: 20110906
  Receipt Date: 20110831
  Transmission Date: 20111222
  Serious: Yes (Death, Hospitalization)
  Sender: FDA-Public Use
  Company Number: US-ROCHE-725105

PATIENT
  Sex: Male
  Weight: 100.6 kg

DRUGS (14)
  1. BEVACIZUMAB [Suspect]
     Indication: NON-SMALL CELL LUNG CANCER
     Route: 042
     Dates: start: 20100622, end: 20100803
  2. CARBOPLATIN [Suspect]
     Indication: NON-SMALL CELL LUNG CANCER
     Dosage: DOSE: 6 AUC
     Route: 042
     Dates: start: 20100622, end: 20100803
  3. WARFARIN SODIUM [Concomitant]
     Dates: start: 20100517
  4. FENTANYL [Concomitant]
     Dates: start: 20100615
  5. LORAZEPAM [Concomitant]
     Dates: start: 20100815
  6. FOLIC ACID [Concomitant]
     Dates: start: 20100615
  7. PROCHLORPERAZINE MALEATE [Concomitant]
     Dates: start: 20100615
  8. ONDANSERTRON HYDROCHLORIDE [Concomitant]
     Dates: start: 20100615
  9. DEXAMETHASONE [Concomitant]
     Dates: start: 20100615
  10. FENOFIBRATE [Concomitant]
     Dates: start: 20100501
  11. PEMETREXED [Suspect]
     Indication: NON-SMALL CELL LUNG CANCER
     Route: 042
     Dates: start: 20100622, end: 20100803
  12. LIDOCAINE [Concomitant]
     Dates: start: 20100803
  13. VITAMIN B-12 [Concomitant]
     Dates: start: 20100615
  14. METFORMIN HCL [Concomitant]
     Dates: start: 20060401

REACTIONS (1)
  - MICROANGIOPATHIC HAEMOLYTIC ANAEMIA [None]
